FAERS Safety Report 5183677-5 (Version None)
Quarter: 2006Q4

REPORT INFORMATION
  Report Type: 
  Country: None (occurrence: None)
  Receive Date: 20061220
  Receipt Date: 20060127
  Transmission Date: 20070319
  Serious: No
  Sender: FDA-Public Use
  Company Number: US-GLAXOSMITHKLINE-A0591249A

PATIENT

DRUGS (1)
  1. NICODERM CQ [Suspect]

REACTIONS (1)
  - PARAESTHESIA [None]
